FAERS Safety Report 16859405 (Version 1)
Quarter: 2019Q3

REPORT INFORMATION
  Report Type: Spontaneous
  Country: US (occurrence: US)
  Receive Date: 20190927
  Receipt Date: 20190927
  Transmission Date: 20191005
  Serious: No
  Sender: FDA-Public Use
  Company Number: US-BIOGEN-2019BI00788746

PATIENT
  Sex: Male

DRUGS (1)
  1. TECFIDERA [Suspect]
     Active Substance: DIMETHYL FUMARATE
     Indication: MULTIPLE SCLEROSIS
     Route: 065

REACTIONS (7)
  - Diarrhoea [Unknown]
  - Product dose omission [Unknown]
  - Vomiting [Unknown]
  - Dyspepsia [Unknown]
  - Nausea [Unknown]
  - Rash [Unknown]
  - Abdominal pain [Unknown]
